FAERS Safety Report 7285639-0 (Version None)
Quarter: 2011Q1

REPORT INFORMATION
  Report Type: 
  Country: None (occurrence: None)
  Receive Date: 20110210
  Receipt Date: 20110202
  Transmission Date: 20110831
  Serious: Yes (Hospitalization)
  Sender: FDA-Public Use
  Company Number: A0894419A

PATIENT
  Sex: Female

DRUGS (4)
  1. TYKERB [Suspect]
     Dosage: 1250MG PER DAY
     Route: 048
     Dates: start: 20100314
  2. XELODA [Suspect]
     Route: 065
  3. NAPROXEN [Concomitant]
  4. PREVACID [Concomitant]

REACTIONS (4)
  - RASH [None]
  - PAIN [None]
  - LYMPHADENOPATHY [None]
  - INFLAMMATION [None]
